FAERS Safety Report 10041819 (Version 2)
Quarter: 2014Q2

REPORT INFORMATION
  Report Type: Spontaneous
  Country: US (occurrence: US)
  Receive Date: 20140327
  Receipt Date: 20140414
  Transmission Date: 20141212
  Serious: Yes (Death, Hospitalization, Other)
  Sender: FDA-Public Use
  Company Number: US-BAXTER-2014BAX015177

PATIENT
  Sex: Male

DRUGS (2)
  1. DIANEAL LOW CALCIUM [Suspect]
     Indication: PERITONEAL DIALYSIS
     Route: 033
     Dates: start: 2000, end: 201403
  2. DIANEAL PD2 [Suspect]
     Indication: PERITONEAL DIALYSIS
     Route: 033
     Dates: start: 2000, end: 201403

REACTIONS (6)
  - Peritonitis bacterial [Fatal]
  - Fall [Unknown]
  - Head injury [Unknown]
  - Limb injury [Unknown]
  - Septic shock [Unknown]
  - General physical health deterioration [Unknown]
